FAERS Safety Report 13875176 (Version 2)
Quarter: 2017Q3

REPORT INFORMATION
  Report Type: Spontaneous
  Country: GB (occurrence: GB)
  Receive Date: 20170816
  Receipt Date: 20170918
  Transmission Date: 20171127
  Serious: Yes (Hospitalization)
  Sender: FDA-Public Use
  Company Number: GB-MYLANLABS-2017M1049142

PATIENT
  Age: 38 Year
  Sex: Female

DRUGS (2)
  1. CLOZARIL [Suspect]
     Active Substance: CLOZAPINE
     Indication: SCHIZOPHRENIA
     Dosage: 550 MG, QD
     Route: 048
     Dates: start: 2010
  2. CLOZARIL [Suspect]
     Active Substance: CLOZAPINE
     Dosage: 450 MG, QD
     Route: 048
     Dates: start: 20170301

REACTIONS (4)
  - Therapy cessation [Unknown]
  - Treatment noncompliance [Unknown]
  - Refusal of treatment by patient [Unknown]
  - No adverse event [Unknown]

NARRATIVE: CASE EVENT DATE: 2013
